FAERS Safety Report 5709661-8 (Version None)
Quarter: 2008Q2

REPORT INFORMATION
  Report Type: 
  Country: None (occurrence: None)
  Receive Date: 20080418
  Receipt Date: 20080415
  Transmission Date: 20081010
  Serious: Yes (Other)
  Sender: FDA-Public Use
  Company Number: D0043348A

PATIENT
  Age: 27 Year
  Sex: Female

DRUGS (4)
  1. VIANI FORTE [Suspect]
     Indication: ASTHMA
     Dosage: 1BLS TWICE PER DAY
     Route: 055
     Dates: start: 20000101
  2. FLUTIDE FORTE [Suspect]
     Indication: ASTHMA
     Dosage: .5MG TWICE PER DAY
     Route: 055
  3. AERIUS [Concomitant]
     Dosage: 5MG PER DAY
     Route: 048
  4. SINGULAIR [Concomitant]
     Indication: ASTHMA
     Route: 065

REACTIONS (7)
  - ASTHMA [None]
  - FLUID RETENTION [None]
  - JOINT SWELLING [None]
  - MICTURITION URGENCY [None]
  - OEDEMA PERIPHERAL [None]
  - POLLAKIURIA [None]
  - RASH [None]
